FAERS Safety Report 6571111-X (Version None)
Quarter: 2010Q1

REPORT INFORMATION
  Report Type: 
  Country: None (occurrence: None)
  Receive Date: 20100204
  Receipt Date: 20100124
  Transmission Date: 20100710
  Serious: Yes (Hospitalization)
  Sender: FDA-Public Use
  Company Number: IL-MEDIMMUNE-MEDI-0010419

PATIENT
  Age: 8 Month
  Sex: Female
  Weight: 5.2 kg

DRUGS (2)
  1. SYNAGIS [Suspect]
     Route: 030
     Dates: start: 20091102, end: 20091223
  2. CARODIOLOGIC MEDICINES [Concomitant]

REACTIONS (4)
  - ASTHMA [None]
  - FEEDING DISORDER OF INFANCY OR EARLY CHILDHOOD [None]
  - PYREXIA [None]
  - RESPIRATORY SYNCYTIAL VIRUS BRONCHIOLITIS [None]
